FAERS Safety Report 7137932-X (Version None)
Quarter: 2010Q4

REPORT INFORMATION
  Report Type: 
  Country: None (occurrence: None)
  Receive Date: 20101102
  Receipt Date: 20100519
  Transmission Date: 20110411
  Serious: Yes (Other)
  Sender: FDA-Public Use
  Company Number: US-WYE-H15335710

PATIENT
  Sex: Female

DRUGS (1)
  1. EFFEXOR XR [Suspect]

REACTIONS (4)
  - BLOOD PRESSURE INCREASED [None]
  - BURNING SENSATION [None]
  - PAIN [None]
  - RASH PRURITIC [None]
